FAERS Safety Report 5709796-X (Version None)
Quarter: 2008Q2

REPORT INFORMATION
  Report Type: 
  Country: None (occurrence: None)
  Receive Date: 20080418
  Receipt Date: 20080408
  Transmission Date: 20081010
  Serious: Yes (Death)
  Sender: FDA-Public Use
  Company Number: US-JNJFOC-20080403242

PATIENT
  Age: 22 Year
  Sex: Male

DRUGS (1)
  1. TOPAMAX [Suspect]
     Indication: CONVULSION

REACTIONS (2)
  - COMPLETED SUICIDE [None]
  - SUICIDAL IDEATION [None]
